FAERS Safety Report 11894154 (Version 5)
Quarter: 2016Q3

REPORT INFORMATION
  Report Type: Report from Study
  Country: US (occurrence: US)
  Receive Date: 20160107
  Receipt Date: 20160921
  Transmission Date: 20161109
  Serious: Yes (Hospitalization)
  Sender: FDA-Public Use
  Company Number: PHEH2016US000520

PATIENT
  Age: 4 Year
  Sex: Female

DRUGS (3)
  1. AFINITOR [Suspect]
     Active Substance: EVEROLIMUS
     Indication: ASTROCYTOMA, LOW GRADE
     Dosage: 2.5 MG, QD
     Route: 048
     Dates: start: 20151228
  2. AFINITOR [Suspect]
     Active Substance: EVEROLIMUS
     Indication: GANGLIOGLIOMA
  3. FIBER [Concomitant]
     Active Substance: PSYLLIUM HUSK
     Indication: PRODUCT USED FOR UNKNOWN INDICATION
     Route: 065

REACTIONS (6)
  - Kidney infection [Recovering/Resolving]
  - Diarrhoea [Unknown]
  - Pyrexia [Unknown]
  - Mouth ulceration [Recovered/Resolved]
  - Viral infection [Recovered/Resolved]
  - Malaise [Recovering/Resolving]

NARRATIVE: CASE EVENT DATE: 20151230
